FAERS Safety Report 7045433-2 (Version None)
Quarter: 2010Q4

REPORT INFORMATION
  Report Type: 
  Country: None (occurrence: None)
  Receive Date: 20101014
  Receipt Date: 20100929
  Transmission Date: 20110411
  Serious: Yes (Hospitalization, Other)
  Sender: FDA-Public Use
  Company Number: JP-ROCHE-666084

PATIENT
  Sex: Male
  Weight: 68 kg

DRUGS (10)
  1. AVASTIN [Suspect]
     Indication: RECTAL CANCER METASTATIC
     Route: 041
     Dates: start: 20080807, end: 20091009
  2. DECADRON [Suspect]
     Indication: PROPHYLAXIS OF NAUSEA AND VOMITING
     Route: 048
     Dates: start: 20080401
  3. TOPOTECAN [Concomitant]
     Dosage: DRUG REPORTED: IRINOTECAN HYDROCHLORIDE
     Route: 041
     Dates: start: 20080807, end: 20091009
  4. FLUOROURACIL [Concomitant]
     Route: 040
     Dates: start: 20080807, end: 20091009
  5. FLUOROURACIL [Concomitant]
     Route: 041
     Dates: start: 20080807, end: 20091001
  6. LEUCOVORIN CALCIUM [Concomitant]
     Route: 041
     Dates: start: 20080807, end: 20091009
  7. BLOPRESS [Concomitant]
     Dosage: DRUG REPORTED: BLOPRESS (CANDESARTAN CILEXETIL)
     Route: 048
     Dates: start: 20080801
  8. LENDORMIN [Concomitant]
     Dosage: DRUG REPORTED: LENDORMIN D
     Route: 048
     Dates: start: 20080801
  9. MAGNESIUM OXIDE [Concomitant]
     Dosage: DRUG REPORTED: JU-KAMA, FORM REPORTED: POWDERED MEDICINE
     Route: 048
     Dates: start: 20080801
  10. LAC-B [Concomitant]
     Dosage: DRUG REPORTED: BIFIDOBACTERIUM, FORM: POWDERED MEDICINE
     Route: 048
     Dates: start: 20080801

REACTIONS (3)
  - INCISIONAL HERNIA [None]
  - LARGE INTESTINAL ULCER [None]
  - LARGE INTESTINE PERFORATION [None]
